FAERS Safety Report 16135413 (Version 3)
Quarter: 2019Q3

REPORT INFORMATION
  Report Type: Report from Study
  Country: CA (occurrence: CA)
  Receive Date: 20190329
  Receipt Date: 20190709
  Transmission Date: 20191004
  Serious: Yes (Hospitalization, Other)
  Sender: FDA-Public Use
  Company Number: CA-JNJFOC-20190118473

PATIENT
  Age: 57 Year
  Sex: Female
  Weight: 62.14 kg

DRUGS (2)
  1. STELARA [Suspect]
     Active Substance: USTEKINUMAB
     Indication: PSORIASIS
     Dosage: STRENGTH = 90 MG
     Route: 042
     Dates: start: 20190122
  2. STELARA [Suspect]
     Active Substance: USTEKINUMAB
     Indication: CROHN^S DISEASE
     Route: 042
     Dates: start: 20181122

REACTIONS (6)
  - Pneumonia [Unknown]
  - Haemorrhage [Unknown]
  - Cystitis [Recovered/Resolved]
  - Anaphylactic shock [Recovered/Resolved]
  - Gastrointestinal haemorrhage [Recovered/Resolved]
  - Asthma [Recovered/Resolved]

NARRATIVE: CASE EVENT DATE: 20181213
